FAERS Safety Report 6438882-4 (Version None)
Quarter: 2009Q4

REPORT INFORMATION
  Report Type: 
  Country: None (occurrence: None)
  Receive Date: 20091113
  Receipt Date: 20091030
  Transmission Date: 20100525
  Serious: Yes (Other)
  Sender: FDA-Public Use
  Company Number: PHHY2009NL47342

PATIENT
  Sex: Female

DRUGS (4)
  1. SLOW-K [Suspect]
     Dosage: 600 MG, UNK
  2. FUROSEMIDE [Concomitant]
     Indication: FLUID RETENTION
  3. DILTIAZEM HCL [Concomitant]
     Indication: CARDIAC DISORDER
  4. HYDROCHLOROTHIAZIDE [Concomitant]
     Indication: CARDIAC DISORDER

REACTIONS (3)
  - DYSPNOEA [None]
  - SOMNOLENCE [None]
  - SYNCOPE [None]
